FAERS Safety Report 24201824 (Version 1)
Quarter: 2024Q3

REPORT INFORMATION
  Report Type: Spontaneous
  Country: US (occurrence: US)
  Receive Date: 20240812
  Receipt Date: 20240812
  Transmission Date: 20241017
  Serious: No
  Sender: ELI LILLY AND CO
  Company Number: US-ELI_LILLY_AND_COMPANY-US202408005362

PATIENT
  Age: 24 Year
  Sex: Female

DRUGS (4)
  1. ZEPBOUND [Suspect]
     Active Substance: TIRZEPATIDE
     Indication: Product used for unknown indication
     Dosage: 10 MG, UNKNOWN
  2. ZEPBOUND [Suspect]
     Active Substance: TIRZEPATIDE
     Indication: Product used for unknown indication
     Dosage: 10 MG, UNKNOWN
  3. ZEPBOUND [Suspect]
     Active Substance: TIRZEPATIDE
     Indication: Product used for unknown indication
     Dosage: 10 MG, UNKNOWN
  4. ZEPBOUND [Suspect]
     Active Substance: TIRZEPATIDE
     Indication: Product used for unknown indication
     Dosage: 10 MG, UNKNOWN

REACTIONS (1)
  - Incorrect dose administered [Unknown]
